FAERS Safety Report 19328892 (Version 1)
Quarter: 2021Q2

REPORT INFORMATION
  Report Type: Report from Study
  Country: GB (occurrence: GB)
  Receive Date: 20210528
  Receipt Date: 20210528
  Transmission Date: 20210717
  Serious: Yes (Life-Threatening, Other)
  Sender: FDA-Public Use
  Company Number: GB-VISTAPHARM, INC.-VER202105-001313

PATIENT

DRUGS (1)
  1. PHENYTOIN. [Suspect]
     Active Substance: PHENYTOIN
     Indication: STATUS EPILEPTICUS
     Dosage: 20 MG/KG (OVER AT LEAST 20 MIN)

REACTIONS (3)
  - Partial seizures [Unknown]
  - Depressed level of consciousness [Unknown]
  - Hypotension [Unknown]
